FAERS Safety Report 7992713-X (Version None)
Quarter: 2011Q4

REPORT INFORMATION
  Report Type: 
  Country: None (occurrence: None)
  Receive Date: 20111219
  Receipt Date: 20110606
  Transmission Date: 20120403
  Serious: No
  Sender: FDA-Public Use
  Company Number: US-ASTRAZENECA-2011SE34845

PATIENT
  Age: 47 Year
  Sex: Male

DRUGS (7)
  1. NORVASC [Concomitant]
     Indication: HYPERTENSION
  2. METHROTREXATE [Suspect]
  3. CRESTOR [Suspect]
     Indication: HYPERCHOLESTEROLAEMIA
     Route: 048
     Dates: start: 20100101
  4. ACTINAL PLUS [Concomitant]
  5. PREDNISONE TAB [Suspect]
  6. INSULIN [Concomitant]
     Indication: DIABETES MELLITUS
  7. VITAMIN D [Concomitant]
     Indication: BONE DISORDER

REACTIONS (3)
  - MUSCLE TIGHTNESS [None]
  - MUSCULAR WEAKNESS [None]
  - ABDOMINAL DISTENSION [None]
